FAERS Safety Report 9299904 (Version 1)
Quarter: 2013Q1

REPORT INFORMATION
  Report Type: Spontaneous
  Country: US (occurrence: None)
  Receive Date: 20130107
  Receipt Date: 20130107
  Transmission Date: 20140127
  Serious: Yes (Other)
  Sender: FDA-Public Use
  Company Number: PHEH2012US018643

PATIENT
  Age: 42 Year
  Sex: Female

DRUGS (3)
  1. GILENYA (FTY)CAPSULE, 0.5MG [Suspect]
     Indication: MULTIPLE SCLEROSIS
     Route: 048
     Dates: start: 20120906
  2. AMITRIPTYLINE (AMITRIPTYLINE) [Concomitant]
  3. GABAPENTIN (GABAPENTIN) [Concomitant]

REACTIONS (11)
  - Multiple sclerosis relapse [None]
  - Bronchitis [None]
  - Alopecia [None]
  - Nasopharyngitis [None]
  - Fatigue [None]
  - Hemiparesis [None]
  - Peroneal nerve palsy [None]
  - Memory impairment [None]
  - Somnolence [None]
  - Cough [None]
  - Pain [None]
